FAERS Safety Report 9691816 (Version 2)
Quarter: 2013Q4

REPORT INFORMATION
  Report Type: Report from Study
  Country: US (occurrence: US)
  Receive Date: 20131115
  Receipt Date: 20131115
  Transmission Date: 20140711
  Serious: Yes (Disabling, Other)
  Sender: FDA-Public Use
  Company Number: US-ASTRAZENECA-2013SE72140

PATIENT
  Age: 83 Year
  Sex: Female
  Weight: 76.2 kg

DRUGS (22)
  1. NEXIUM [Suspect]
     Indication: GASTROOESOPHAGEAL REFLUX DISEASE
     Route: 048
     Dates: start: 2010
  2. NEXIUM [Suspect]
     Indication: GASTROOESOPHAGEAL REFLUX DISEASE
     Route: 048
     Dates: start: 2010
  3. NEXIUM [Suspect]
     Indication: GASTROOESOPHAGEAL REFLUX DISEASE
     Route: 048
  4. NEXIUM [Suspect]
     Indication: GASTROOESOPHAGEAL REFLUX DISEASE
     Route: 048
  5. REQUIP [Concomitant]
     Indication: RESTLESS LEGS SYNDROME
     Dosage: 0.5 DAILY
     Route: 048
     Dates: start: 201308
  6. XIFAXAX [Concomitant]
     Indication: BACTERIAL INFECTION
     Route: 048
     Dates: start: 201309
  7. LEVOTHYROXINE [Concomitant]
     Indication: THYROID DISORDER
     Route: 048
  8. FLUOXETINE [Concomitant]
     Route: 048
  9. SIMVASTATIN [Concomitant]
     Route: 048
  10. AMLODOPINE [Concomitant]
     Route: 048
  11. MIRALAX [Concomitant]
     Dosage: PRN
     Route: 048
  12. LORAZAPAN [Concomitant]
     Dosage: PRN
     Route: 048
  13. VITAMIN D [Concomitant]
     Route: 048
  14. COLACE [Concomitant]
     Route: 048
  15. VITAMIN C [Concomitant]
     Dosage: 500MG
     Route: 048
  16. ACIDOPHALUS [Concomitant]
     Route: 048
  17. ASPIRIN [Concomitant]
     Indication: CARDIAC DISORDER
     Route: 048
  18. L-LYCINE [Concomitant]
     Route: 048
  19. COQ10 [Concomitant]
     Route: 048
  20. RESTASIS [Concomitant]
     Indication: GLAUCOMA
     Dosage: 0.05% BID
     Route: 050
  21. BRIMONIDINE [Concomitant]
     Dosage: 0.2% BID
     Route: 050
  22. LATANAPROST [Concomitant]
     Dosage: 0.005% DAILY
     Route: 050

REACTIONS (9)
  - Achlorhydria [Unknown]
  - Malabsorption [Unknown]
  - Restless legs syndrome [Unknown]
  - Gait disturbance [Unknown]
  - Body height decreased [Unknown]
  - Gastrointestinal bacterial infection [Unknown]
  - Glaucoma [Unknown]
  - Osteoarthritis [Unknown]
  - Off label use [Unknown]
